FAERS Safety Report 4607516-3 (Version None)
Quarter: 2005Q1

REPORT INFORMATION
  Report Type: 
  Country: None (occurrence: None)
  Receive Date: 20050309
  Receipt Date: 20050221
  Transmission Date: 20050727
  Serious: Yes (Congenital Anomaly)
  Sender: FDA-Public Use
  Company Number: 10357

PATIENT

DRUGS (1)
  1. METHOTREXATE [Suspect]
     Dosage: UNK
     Route: 065

REACTIONS (8)
  - DEFORMITY OF ORBIT [None]
  - DRUG EXPOSURE DURING PREGNANCY [None]
  - HYPERTELORISM OF ORBIT [None]
  - JOINT DISLOCATION [None]
  - LOW SET EARS [None]
  - MULTIPLE CONGENITAL ABNORMALITIES [None]
  - SKULL MALFORMATION [None]
  - SYNDACTYLY [None]
